FAERS Safety Report 11663981 (Version 2)
Quarter: 2015Q4

REPORT INFORMATION
  Report Type: Report from Study
  Country: US (occurrence: US)
  Receive Date: 20151027
  Receipt Date: 20151028
  Transmission Date: 20160304
  Serious: Yes (Other)
  Sender: FDA-Public Use
  Company Number: PHEH2014US022577

PATIENT
  Age: 39 Year
  Sex: Male

DRUGS (1)
  1. CLOZARIL [Suspect]
     Active Substance: CLOZAPINE
     Indication: PRODUCT USED FOR UNKNOWN INDICATION
     Dosage: UNK
     Route: 065

REACTIONS (7)
  - Chronic kidney disease [Unknown]
  - Abdominal pain [Unknown]
  - Abdominal infection [Unknown]
  - White blood cell count increased [Unknown]
  - Hypertension [Unknown]
  - Diabetes mellitus [Unknown]
  - Seizure [Unknown]

NARRATIVE: CASE EVENT DATE: 20141106
